FAERS Safety Report 9253914 (Version 1)
Quarter: 2013Q2

REPORT INFORMATION
  Report Type: Spontaneous
  Country: GB (occurrence: GB)
  Receive Date: 20130425
  Receipt Date: 20130425
  Transmission Date: 20140414
  Serious: Yes (Other)
  Sender: FDA-Public Use
  Company Number: GB-UCBSA-079361

PATIENT
  Age: 48 Year
  Sex: Female

DRUGS (4)
  1. CIMZIA [Suspect]
     Route: 058
     Dates: start: 20121121, end: 20121219
  2. LEFLUNOMIDE [Concomitant]
  3. METHOTREXATE [Concomitant]
  4. SULFASALAZINE [Concomitant]

REACTIONS (3)
  - Rash generalised [Recovered/Resolved]
  - Adverse event [Unknown]
  - Rash pruritic [Recovered/Resolved]
